FAERS Safety Report 19063968 (Version 1)
Quarter: 2021Q1

REPORT INFORMATION
  Report Type: Spontaneous
  Country: US (occurrence: US)
  Receive Date: 20210326
  Receipt Date: 20210326
  Transmission Date: 20210420
  Serious: No
  Sender: FDA-Public Use
  Company Number: US-SA-2021SA089870

PATIENT
  Age: 10 Year
  Sex: Male

DRUGS (1)
  1. LANTUS SOLOSTAR [Suspect]
     Active Substance: INSULIN GLARGINE
     Dosage: 5 UNITS  AM AND 8 UNITS PM
     Route: 065
     Dates: start: 20200622

REACTIONS (1)
  - Inappropriate schedule of product administration [Unknown]
